FAERS Safety Report 22586303 (Version 1)
Quarter: 2023Q2

REPORT INFORMATION
  Report Type: Report from Study
  Country: DE (occurrence: DE)
  Receive Date: 20230611
  Receipt Date: 20230611
  Transmission Date: 20230722
  Serious: Yes (Death, Other)
  Sender: FDA-Public Use
  Company Number: DE-CELLTRION HEALTHCARE HUNGARY KFT-2023DE004596

PATIENT
  Age: 72 Year
  Sex: Male

DRUGS (13)
  1. AZACITIDINE [Suspect]
     Active Substance: AZACITIDINE
     Indication: Acute myelomonocytic leukaemia
     Dosage: 75 MG/M2 MILLIGRAM(S)/SQ. METER
  2. FILGRASTIM [Suspect]
     Active Substance: FILGRASTIM
     Indication: Diffuse large B-cell lymphoma stage IV
     Dosage: 375 MG/M2(DAY 1OF EACH 28 DAY CYCLE FOR 6 CYCLES)
     Dates: start: 201801
  3. CYTARABINE [Suspect]
     Active Substance: CYTARABINE
     Indication: Acute myelomonocytic leukaemia
     Dosage: 100 MILLIGRAM, QD (A MILD, PALLIATIVE THERAPY REGIMENS)
  4. LENALIDOMIDE [Suspect]
     Active Substance: LENALIDOMIDE
     Indication: Diffuse large B-cell lymphoma recurrent
     Dosage: 20 MG, 1.33 DAY (DAYS 1, 21 OF EACH 28 DAY CYCLE)
     Dates: start: 20171025
  5. IBRUTINIB [Suspect]
     Active Substance: IBRUTINIB
     Indication: Diffuse large B-cell lymphoma
     Dosage: 560 MILLIGRAM, QD
  6. IBRUTINIB [Suspect]
     Active Substance: IBRUTINIB
     Indication: Diffuse large B-cell lymphoma stage IV
     Dosage: 560 MG, QD (DAILY)
     Dates: start: 20171025
  7. RITUXIMAB [Suspect]
     Active Substance: RITUXIMAB
     Indication: Diffuse large B-cell lymphoma recurrent
     Dosage: 375 MG, DAY 1 OF EACH 28 DAY CYCLE FOR 6 CYCLES
  8. PREDNISONE [Concomitant]
     Active Substance: PREDNISONE
     Indication: Diffuse large B-cell lymphoma stage IV
     Dosage: 100 MILLIGRAM (COMPLETED SIX COURSES OF R-CHOP-14 DAY 1-5)
  9. VINCRISTINE [Concomitant]
     Active Substance: VINCRISTINE
     Indication: Diffuse large B-cell lymphoma stage IV
     Dosage: 1 MILLIGRAM (COMPLETED SIX COURSES OF R-CHOP-14
  10. DOXORUBICIN [Concomitant]
     Active Substance: DOXORUBICIN
     Indication: Diffuse large B-cell lymphoma stage IV
     Dosage: 50 MILLIGRAM/SQ. METER (COMPLETED SIX COURSES OF
  11. CYCLOPHOSPHAMIDE [Concomitant]
     Active Substance: CYCLOPHOSPHAMIDE
     Indication: Diffuse large B-cell lymphoma stage IV
     Dosage: 750 MILLIGRAM/SQ. METER (COMPLETED SIX COURSES OF R-CHOP-14)
  12. FILGRASTIM [Suspect]
     Active Substance: FILGRASTIM
     Indication: Diffuse large B-cell lymphoma stage IV
     Dosage: SHORT ACTINGG-CSF -FILGRASTIM ON DAY 4 UNTIL GRANULOCYTE REGENERATION
     Dates: start: 20180228
  13. RITUXIMAB [Suspect]
     Active Substance: RITUXIMAB
     Indication: Diffuse large B-cell lymphoma recurrent
     Dosage: 375 MG/SQ. METER, CYCLE (HEMOTHERAPEUTIC-FREE PCY)
     Dates: start: 20171025

REACTIONS (4)
  - Drug ineffective [Fatal]
  - Second primary malignancy [Unknown]
  - Neutropenia [Recovering/Resolving]
  - Acute myeloid leukaemia [Unknown]

NARRATIVE: CASE EVENT DATE: 20180101
